FAERS Safety Report 9247326 (Version 5)
Quarter: 2020Q3

REPORT INFORMATION
  Report Type: Report from Study
  Country: US (occurrence: US)
  Receive Date: 20130423
  Receipt Date: 20130731
  Transmission Date: 20201104
  Serious: Yes (Other)
  Sender: FDA-Public Use
  Company Number: US-JNJFOC-20130408905

PATIENT
  Age: 54 Year
  Sex: Male
  Weight: 110.7 kg

DRUGS (16)
  1. GOLIMUMAB [Suspect]
     Active Substance: GOLIMUMAB
     Indication: COLITIS ULCERATIVE
     Route: 058
     Dates: start: 20130312
  2. VERAPAMIL [Concomitant]
     Active Substance: VERAPAMIL HYDROCHLORIDE
     Indication: HYPERTENSION
     Route: 048
     Dates: start: 1997
  3. SINGULAIR [Concomitant]
     Active Substance: MONTELUKAST SODIUM
     Indication: ASTHMA
     Route: 048
     Dates: start: 2000
  4. LIALDA [Concomitant]
     Active Substance: MESALAMINE
     Indication: COLITIS ULCERATIVE
     Route: 048
     Dates: start: 2008
  5. AUGMENTIN [Concomitant]
     Active Substance: AMOXICILLIN\CLAVULANATE POTASSIUM
     Route: 048
     Dates: start: 20130216
  6. FISH OIL [Concomitant]
     Active Substance: FISH OIL
     Route: 048
     Dates: start: 20111104
  7. FLOVENT [Concomitant]
     Active Substance: FLUTICASONE PROPIONATE
     Indication: ASTHMA
     Route: 055
     Dates: start: 201301
  8. ZYRTEC [Concomitant]
     Active Substance: CETIRIZINE HYDROCHLORIDE
     Indication: ASTHMA
     Route: 048
     Dates: start: 2000
  9. HYDROCORTISONE CREAM [Concomitant]
     Active Substance: HYDROCORTISONE
     Indication: HAEMORRHOIDS
     Route: 061
     Dates: start: 20130511
  10. ENTOCORT EC [Concomitant]
     Active Substance: BUDESONIDE
     Indication: ASTHMA
     Route: 048
     Dates: start: 200909
  11. GOLIMUMAB [Suspect]
     Active Substance: GOLIMUMAB
     Indication: COLITIS ULCERATIVE
     Route: 058
     Dates: start: 20100618
  12. ALLOPURINOL. [Concomitant]
     Active Substance: ALLOPURINOL
     Indication: GOUT
     Route: 048
     Dates: start: 2003
  13. DIOVAN HCT [Concomitant]
     Active Substance: HYDROCHLOROTHIAZIDE\VALSARTAN
     Indication: HYPERTENSION
     Route: 048
     Dates: start: 20130213
  14. DIOVAN HCT [Concomitant]
     Active Substance: HYDROCHLOROTHIAZIDE\VALSARTAN
     Indication: HYPERTENSION
     Dosage: 160 MG/12.5 MG
     Route: 048
     Dates: start: 1997
  15. ADVAIR HFA [Concomitant]
     Active Substance: FLUTICASONE PROPIONATE\SALMETEROL XINAFOATE
     Dosage: 500 MCG/50 MCG
     Route: 055
     Dates: start: 1997
  16. MEN MULTIVITAMINS [Concomitant]
     Route: 048
     Dates: start: 2007

REACTIONS (1)
  - T-cell lymphoma [Not Recovered/Not Resolved]

NARRATIVE: CASE EVENT DATE: 20130410
